FAERS Safety Report 25386509 (Version 1)
Quarter: 2025Q2

REPORT INFORMATION
  Report Type: Spontaneous
  Country: US (occurrence: US)
  Receive Date: 20250602
  Receipt Date: 20250602
  Transmission Date: 20250716
  Serious: Yes (Death, Other)
  Sender: IPSEN BIOPHARMACEUTICALS, INC.
  Company Number: US-IPSEN Group, Research and Development-2025-12909

PATIENT
  Age: 81 Year
  Sex: Female

DRUGS (30)
  1. SOMATULINE DEPOT [Suspect]
     Active Substance: LANREOTIDE ACETATE
     Indication: Hypopituitarism
     Dosage: 90 MG 0.3 ML PFS, INJECT SUBCUT ONCE A MONTH
     Route: 058
  2. SOMATULINE DEPOT [Suspect]
     Active Substance: LANREOTIDE ACETATE
     Indication: Off label use
  3. SOMATULINE DEPOT [Suspect]
     Active Substance: LANREOTIDE ACETATE
     Indication: Acromegaly
  4. ACETAMINOPHEN [Concomitant]
     Active Substance: ACETAMINOPHEN
  5. PROMETHAZINE HYDROCHLORIDE [Concomitant]
     Active Substance: PROMETHAZINE HYDROCHLORIDE
  6. WARFARIN SODIUM [Concomitant]
     Active Substance: WARFARIN SODIUM
  7. POTASSIUM CHLORIDE [Concomitant]
     Active Substance: POTASSIUM CHLORIDE
  8. CEFDINIR [Concomitant]
     Active Substance: CEFDINIR
  9. OXYCODONE HYDROCHLORIDE [Concomitant]
     Active Substance: OXYCODONE HYDROCHLORIDE
  10. POLYMYXIN B SULFATE;TRIMETHOPRIM [Concomitant]
  11. BACITRACIN [Concomitant]
     Active Substance: BACITRACIN
  12. PREDNISOLONE ACETATE [Concomitant]
     Active Substance: PREDNISOLONE ACETATE
  13. VALACYCLOVIR HYDROCHLORIDE [Concomitant]
     Active Substance: VALACYCLOVIR HYDROCHLORIDE
  14. ACYCLOVIR [Concomitant]
     Active Substance: ACYCLOVIR
  15. SOLU-MEDROL [Concomitant]
     Active Substance: METHYLPREDNISOLONE SODIUM SUCCINATE
  16. ONDANSETRON HYDROCHLORIDE [Concomitant]
     Active Substance: ONDANSETRON HYDROCHLORIDE
  17. PROCHLORPERAZINE MALEATE [Concomitant]
     Active Substance: PROCHLORPERAZINE MALEATE
  18. ACETAMINOPHEN\HYDROCODONE [Concomitant]
     Active Substance: ACETAMINOPHEN\HYDROCODONE
  19. NYSTATIN [Concomitant]
     Active Substance: NYSTATIN
  20. TRIAMCINOLONE [Concomitant]
     Active Substance: TRIAMCINOLONE
  21. AMOXICILLIN [Concomitant]
     Active Substance: AMOXICILLIN
  22. MOVIPREP [Concomitant]
     Active Substance: ASCORBIC ACID\POLYETHYLENE GLYCOL 3350\POTASSIUM CHLORIDE\SODIUM ASCORBATE\SODIUM CHLORIDE\SODIUM SU
  23. ADACEL TDAP [Concomitant]
     Active Substance: TETANUS TOXOID, REDUCED DIPHTHERIA TOXOID AND ACELLULAR PERTUSSIS VACCINE ADSORBED, TDAP
  24. FUROSEMIDE [Concomitant]
     Active Substance: FUROSEMIDE
  25. VIVELLE-DOT [Concomitant]
     Active Substance: ESTRADIOL
  26. LOSARTAN [Concomitant]
     Active Substance: LOSARTAN
  27. POTASSIUM [Concomitant]
     Active Substance: POTASSIUM
  28. OMEPRAZOLE [Concomitant]
     Active Substance: OMEPRAZOLE
  29. TOPROL XL [Concomitant]
     Active Substance: METOPROLOL SUCCINATE
  30. MELOXICAM [Concomitant]
     Active Substance: MELOXICAM

REACTIONS (2)
  - Death [Fatal]
  - Off label use [Unknown]

NARRATIVE: CASE EVENT DATE: 20250524
